FAERS Safety Report 12581490 (Version 2)
Quarter: 2020Q1

REPORT INFORMATION
  Report Type: Report from Study
  Country: US (occurrence: US)
  Receive Date: 20160721
  Receipt Date: 20200109
  Transmission Date: 20200409
  Serious: Yes (Other)
  Sender: FDA-Public Use
  Company Number: US-AMGEN-USASL2016091906

PATIENT
  Age: 56 Year
  Sex: Female

DRUGS (1)
  1. ENBREL [Suspect]
     Active Substance: ETANERCEPT
     Indication: PSORIATIC ARTHROPATHY
     Dosage: UNK
     Route: 065

REACTIONS (5)
  - Renal failure [Not Recovered/Not Resolved]
  - Cerebrovascular accident [Unknown]
  - Pain [Unknown]
  - Transient ischaemic attack [Unknown]
  - Periarthritis [Unknown]

NARRATIVE: CASE EVENT DATE: 201605
